FAERS Safety Report 19501393 (Version 1)
Quarter: 2021Q3

REPORT INFORMATION
  Report Type: Other
  Country: US (occurrence: US)
  Receive Date: 20210707
  Receipt Date: 20210707
  Transmission Date: 20211014
  Serious: Yes (Other)
  Sender: FDA-Public Use
  Company Number: US-ROCHE-2861773

PATIENT
  Sex: Male

DRUGS (2)
  1. XELODA [Suspect]
     Active Substance: CAPECITABINE
     Indication: COLORECTAL CANCER METASTATIC
     Dosage: TAKE 2 TABLET(S) BY MOUTH IN THE MORNING AND TAKE 1 TABLET BY MOUTH IN THE EVENING FOR 14 DAYS ON, T
     Route: 048
  2. XELODA [Suspect]
     Active Substance: CAPECITABINE
     Indication: COLON CANCER

REACTIONS (2)
  - Ear infection [Unknown]
  - Deafness unilateral [Unknown]
